FAERS Safety Report 9316645 (Version 2)
Quarter: 2013Q2

REPORT INFORMATION
  Report Type: Spontaneous
  Country: IT (occurrence: IT)
  Receive Date: 20130530
  Receipt Date: 20130621
  Transmission Date: 20140414
  Serious: Yes (Hospitalization)
  Sender: FDA-Public Use
  Company Number: PHHY2013IT054060

PATIENT
  Age: 66 Year
  Sex: Male

DRUGS (2)
  1. ZOMETA [Suspect]
     Indication: COLON CANCER
     Dosage: 4 MG
     Route: 042
     Dates: start: 20100301, end: 20130517
  2. XELODA [Concomitant]
     Indication: COLON CANCER
     Dosage: 2500 MG, UNK
     Route: 048
     Dates: start: 20090801

REACTIONS (1)
  - Osteonecrosis of jaw [Recovered/Resolved]
